FAERS Safety Report 6427112-5 (Version None)
Quarter: 2009Q4

REPORT INFORMATION
  Report Type: 
  Country: None (occurrence: None)
  Receive Date: 20091104
  Receipt Date: 20091027
  Transmission Date: 20100525
  Serious: Yes (Other)
  Sender: FDA-Public Use
  Company Number: SE-AVENTIS-200919515GDDC

PATIENT
  Age: 9 Year
  Sex: Female

DRUGS (5)
  1. MINIRIN [Suspect]
     Route: 060
     Dates: start: 20061002
  2. MINIRIN [Suspect]
     Dosage: DOSE: UNK
     Route: 045
  3. SINGULAIR [Concomitant]
     Dosage: DOSE: UNK
  4. ALBUTEROL [Concomitant]
     Dosage: DOSE: UNK
  5. PULMICORT [Concomitant]
     Dosage: DOSE: UNK

REACTIONS (3)
  - DRUG INEFFECTIVE [None]
  - EPISTAXIS [None]
  - HALLUCINATION [None]
